FAERS Safety Report 10550206 (Version 1)
Quarter: 2014Q4

REPORT INFORMATION
  Report Type: Spontaneous
  Country: PK (occurrence: PK)
  Receive Date: 20141028
  Receipt Date: 20141028
  Transmission Date: 20150529
  Serious: Yes (Other)
  Sender: FDA-Public Use
  Company Number: PK-SPECTRUM PHARMACEUTICALS, INC.-14-F-PK-00286

PATIENT
  Age: 29 Year
  Sex: Male

DRUGS (1)
  1. FLUOROURACIL. [Suspect]
     Active Substance: FLUOROURACIL
     Indication: OESOPHAGEAL CARCINOMA

REACTIONS (5)
  - Leukoencephalopathy [Recovered/Resolved]
  - Acute kidney injury [Recovered/Resolved]
  - Left ventricular dysfunction [Recovered/Resolved]
  - Ventricular tachycardia [Recovered/Resolved]
  - Myocardial infarction [Recovered/Resolved]
